FAERS Safety Report 6407113-3 (Version None)
Quarter: 2009Q4

REPORT INFORMATION
  Report Type: 
  Country: None (occurrence: None)
  Receive Date: 20091014
  Receipt Date: 20090929
  Transmission Date: 20100525
  Serious: Yes (Hospitalization)
  Sender: FDA-Public Use
  Company Number: 20090312

PATIENT
  Age: 24 Year
  Sex: Female

DRUGS (1)
  1. VENOFER [Suspect]
     Dosage: 200 MG SINGLE DOSE INTRAVENOUS DRIP
     Route: 041
     Dates: start: 20090706, end: 20090706

REACTIONS (7)
  - ARTHRALGIA [None]
  - DIZZINESS [None]
  - DRUG EXPOSURE DURING PREGNANCY [None]
  - MUSCLE SPASMS [None]
  - MUSCULAR WEAKNESS [None]
  - NAUSEA [None]
  - THROMBOPHLEBITIS SUPERFICIAL [None]
